FAERS Safety Report 23718453 (Version 1)
Quarter: 2024Q2

REPORT INFORMATION
  Report Type: Spontaneous
  Country: US (occurrence: US)
  Receive Date: 20240408
  Receipt Date: 20240408
  Transmission Date: 20240716
  Serious: No
  Sender: FDA-Public Use
  Company Number: US-TEVA-VS-3157419

PATIENT
  Age: 24 Year
  Sex: Male
  Weight: 86 kg

DRUGS (1)
  1. UZEDY [Suspect]
     Active Substance: RISPERIDONE
     Dosage: 75/0.21 MG/ML
     Route: 065
     Dates: end: 20240131

REACTIONS (4)
  - Delusional disorder, unspecified type [Unknown]
  - Psychotic disorder [Unknown]
  - Intentional product misuse [Unknown]
  - Toxicity to various agents [Unknown]
